FAERS Safety Report 19717665 (Version 1)
Quarter: 2021Q3

REPORT INFORMATION
  Report Type: Spontaneous
  Country: US (occurrence: US)
  Receive Date: 20210819
  Receipt Date: 20210819
  Transmission Date: 20211014
  Serious: No
  Sender: FDA-Public Use
  Company Number: US-ELI_LILLY_AND_COMPANY-US202108007648

PATIENT

DRUGS (1)
  1. TALTZ [Suspect]
     Active Substance: IXEKIZUMAB
     Indication: PSORIASIS
     Dosage: 300 MG, SINGLE (LOADING DOSE)
     Route: 065

REACTIONS (3)
  - Injection site pain [Recovered/Resolved]
  - Overdose [Unknown]
  - Injection site rash [Recovered/Resolved]
